FAERS Safety Report 19120297 (Version 2)
Quarter: 2021Q2

REPORT INFORMATION
  Report Type: Spontaneous
  Country: DE (occurrence: DE)
  Receive Date: 20210412
  Receipt Date: 20210416
  Transmission Date: 20210717
  Serious: Yes (Hospitalization)
  Sender: FDA-Public Use
  Company Number: DE-JNJFOC-20210407982

PATIENT
  Age: 77 Year
  Sex: Male
  Weight: 95 kg

DRUGS (17)
  1. METAMIZOLE [Concomitant]
     Active Substance: METAMIZOLE
     Dosage: 40 DROPS EACH
     Route: 065
  2. DARBEPOETIN ALFA [Concomitant]
     Active Substance: DARBEPOETIN ALFA
     Dosage: PRE?FILLED SYRINGES
     Route: 058
  3. PREDNISOLONE. [Suspect]
     Active Substance: PREDNISOLONE
     Indication: PRODUCT USED FOR UNKNOWN INDICATION
     Dosage: 5 MG, 2?0?0?0, TABLETTEN
     Route: 065
  4. FENTANYL. [Concomitant]
     Active Substance: FENTANYL
     Dosage: 12 UG/H, CHANGE OF PATCH EVERY THREE DAYS
     Route: 062
  5. SIMVASTATIN. [Concomitant]
     Active Substance: SIMVASTATIN
     Dosage: 20 MG, 0?0?0.5?0, TABLETTEN
     Route: 065
  6. CANDESARTAN. [Concomitant]
     Active Substance: CANDESARTAN
     Dosage: 16 MG, 1?0?1?0, TABLETTEN
     Route: 065
  7. LEUPRORELINE [Suspect]
     Active Substance: LEUPROLIDE
     Indication: PRODUCT USED FOR UNKNOWN INDICATION
     Dosage: PRE?FILLED SYRINGE
     Route: 058
  8. APIDRA [Concomitant]
     Active Substance: INSULIN GLULISINE
     Dosage: PRE?FILLED SYRINGES
     Route: 058
  9. PANTOPRAZOLE [Concomitant]
     Active Substance: PANTOPRAZOLE
     Dosage: 40 MG, 1?0?0?0, TABLETTEN
     Route: 065
  10. MOVICOL [Concomitant]
     Active Substance: POLYETHYLENE GLYCOL 3350\POTASSIUM CHLORIDE\SODIUM BICARBONATE\SODIUM CHLORIDE
     Dosage: 1?1?0?0, PULVER
     Route: 065
  11. LERCANIDIPINE [Concomitant]
     Active Substance: LERCANIDIPINE
     Dosage: 10 MG, 1?0?1?0, TABLETTEN
     Route: 065
  12. METOPROLOL. [Concomitant]
     Active Substance: METOPROLOL
     Dosage: 23.75 MG, 1?0?1?0
     Route: 065
  13. ZYTIGA [Suspect]
     Active Substance: ABIRATERONE ACETATE
     Indication: PRODUCT USED FOR UNKNOWN INDICATION
     Dosage: 500 MG, 2?0?0?0, TABLETTEN
     Route: 048
  14. ALLOPURINOL. [Concomitant]
     Active Substance: ALLOPURINOL
     Dosage: 100 MG, 1?0?0?09, TABLETTEN
     Route: 065
  15. DIHYDRALAZINE [Concomitant]
     Active Substance: DIHYDRALAZINE
     Dosage: 25 MG, 1?0?1?1, TABLETTEN
     Route: 065
  16. TORASEMID [Concomitant]
     Active Substance: TORSEMIDE
     Dosage: 10 MG, 1?1?0?1, TABLETTEN
     Route: 065
  17. COLECALCIFEROL [Concomitant]
     Active Substance: CHOLECALCIFEROL
     Dosage: 20000 IE / WOCHE, 1 X SONNTAGS, TABLETTEN
     Route: 065

REACTIONS (10)
  - Cardiac failure [Recovering/Resolving]
  - Electrolyte imbalance [Recovering/Resolving]
  - Impaired healing [Recovering/Resolving]
  - Electrocardiogram QT prolonged [Recovering/Resolving]
  - General physical health deterioration [Recovering/Resolving]
  - Urinary tract infection [Recovering/Resolving]
  - Pleural effusion [Recovering/Resolving]
  - Oedema peripheral [Recovering/Resolving]
  - Pyrexia [Recovering/Resolving]
  - Vomiting [Recovering/Resolving]
